FAERS Safety Report 12582264 (Version 1)
Quarter: 2016Q3

REPORT INFORMATION
  Report Type: Spontaneous
  Country: US (occurrence: None)
  Receive Date: 20160721
  Receipt Date: 20160721
  Transmission Date: 20161109
  Serious: No
  Sender: FDA-Public Use
  Company Number: None

PATIENT
  Sex: Female

DRUGS (3)
  1. NOVOLIN [Suspect]
     Active Substance: INSULIN HUMAN
  2. NOVOLOG [Suspect]
     Active Substance: INSULIN ASPART
  3. LANTUS [Suspect]
     Active Substance: INSULIN GLARGINE

REACTIONS (7)
  - Glycosylated haemoglobin increased [None]
  - Burning sensation [None]
  - Pain [None]
  - Blood glucose increased [None]
  - Injection site pain [None]
  - Muscle spasms [None]
  - Blood cholesterol increased [None]
